FAERS Safety Report 9214111 (Version 1)
Quarter: 2013Q2

REPORT INFORMATION
  Report Type: Report from Study
  Country: CA (occurrence: AU)
  Receive Date: 20130405
  Receipt Date: 20130405
  Transmission Date: 20140414
  Serious: Yes (Hospitalization)
  Sender: FDA-Public Use
  Company Number: CA-JNJFOC-20130317834

PATIENT
  Sex: Male

DRUGS (5)
  1. REMICADE [Suspect]
     Indication: CROHN^S DISEASE
     Route: 042
     Dates: start: 20130129
  2. REMICADE [Suspect]
     Indication: CROHN^S DISEASE
     Route: 042
     Dates: start: 20070209
  3. CALCIUM [Concomitant]
     Route: 065
  4. IMURAN [Concomitant]
     Route: 065
  5. BETA-BLOCKER, NOS [Concomitant]
     Route: 065

REACTIONS (4)
  - Meningitis [Unknown]
  - Listeriosis [Unknown]
  - Convulsion [Unknown]
  - Hydrocephalus [Unknown]
